FAERS Safety Report 7824734-1 (Version None)
Quarter: 2011Q4

REPORT INFORMATION
  Report Type: 
  Country: None (occurrence: None)
  Receive Date: 20111019
  Receipt Date: 20111010
  Transmission Date: 20120403
  Serious: Yes (Other)
  Sender: FDA-Public Use
  Company Number: PHHY2011PL80436

PATIENT
  Sex: Male
  Weight: 62 kg

DRUGS (5)
  1. TASIGNA [Suspect]
     Dosage: 200 MG, BID
     Route: 048
  2. TASIGNA [Suspect]
     Dosage: 400 MG, BID
     Route: 048
     Dates: start: 20110328
  3. TASIGNA [Suspect]
     Dosage: 400 MG, BID
     Route: 048
     Dates: start: 20110511
  4. TASIGNA [Suspect]
     Dosage: 400 MG, BID
     Route: 048
     Dates: end: 20110906
  5. TASIGNA [Suspect]
     Dosage: 200 MG, BID
     Route: 048

REACTIONS (5)
  - ALANINE AMINOTRANSFERASE INCREASED [None]
  - ASPARTATE AMINOTRANSFERASE INCREASED [None]
  - DERMATITIS ALLERGIC [None]
  - BLOOD BILIRUBIN INCREASED [None]
  - HEPATOCELLULAR INJURY [None]
